FAERS Safety Report 12663529 (Version 1)
Quarter: 2016Q3

REPORT INFORMATION
  Report Type: Spontaneous
  Country: US (occurrence: US)
  Receive Date: 20160818
  Receipt Date: 20160818
  Transmission Date: 20161109
  Serious: Yes (Other)
  Sender: FDA-Public Use
  Company Number: US-PFIZER INC-2016386056

PATIENT

DRUGS (1)
  1. LYRICA [Suspect]
     Active Substance: PREGABALIN
     Dosage: AT 50 MG 3X/DAY (TID) OR 4X/DAY (QID)

REACTIONS (4)
  - Rib fracture [Unknown]
  - Pain [Unknown]
  - Fall [Unknown]
  - Product use issue [Unknown]
